FAERS Safety Report 7434787-0 (Version None)
Quarter: 2011Q2

REPORT INFORMATION
  Report Type: 
  Country: None (occurrence: None)
  Receive Date: 20110425
  Receipt Date: 20110421
  Transmission Date: 20111010
  Serious: Yes (Hospitalization, Other)
  Sender: FDA-Public Use
  Company Number: US-PFIZER INC-2011087264

PATIENT
  Sex: Female

DRUGS (3)
  1. AMOXIL [Concomitant]
     Indication: RESPIRATORY DISORDER
     Dosage: 250 MG, 2X/DAY
     Route: 048
  2. SOLU-MEDROL [Suspect]
     Indication: DYSPNOEA
     Dosage: 125 MG, UNK
     Route: 030
     Dates: start: 20110418
  3. DEPO-PROVERA [Concomitant]
     Indication: CONTRACEPTION
     Dosage: UNK, EVERY 3 MONTHS

REACTIONS (5)
  - PALLOR [None]
  - HEART RATE DECREASED [None]
  - RESPIRATORY DISORDER [None]
  - UNRESPONSIVE TO STIMULI [None]
  - HYPERHIDROSIS [None]
